FAERS Safety Report 5662675-9 (Version None)
Quarter: 2008Q1

REPORT INFORMATION
  Report Type: 
  Country: None (occurrence: None)
  Receive Date: 20080313
  Receipt Date: 20080305
  Transmission Date: 20080703
  Serious: Yes (Hospitalization)
  Sender: FDA-Public Use
  Company Number: GB-ROCHE-551611

PATIENT
  Age: 80 Year
  Sex: Female

DRUGS (10)
  1. ORLISTAT [Suspect]
     Indication: OBESITY
     Route: 048
     Dates: start: 20071101
  2. MIRTAZAPINE [Concomitant]
     Indication: SLEEP DISORDER
     Route: 048
  3. ASPIRIN [Concomitant]
     Indication: THROMBOSIS PROPHYLAXIS
     Dosage: REPORTED AS DISPERSIBLE TABLETS
     Route: 048
  4. FUROSEMIDE [Concomitant]
     Indication: FLUID RETENTION
     Route: 048
  5. FELODIPINE [Concomitant]
     Indication: BLOOD PRESSURE
     Route: 048
  6. CANDESARTAN CILEXETIL [Concomitant]
     Indication: BLOOD PRESSURE
     Route: 048
  7. LEVOTHYROXINE SODIUM [Concomitant]
     Indication: HYPOTHYROIDISM
     Route: 048
  8. TAMOXIFEN [Concomitant]
     Route: 048
  9. ADCAL [Concomitant]
     Route: 048
  10. DEPAKOTE [Concomitant]
     Route: 048

REACTIONS (1)
  - BREAST CANCER [None]
